FAERS Safety Report 23643751 (Version 1)
Quarter: 2024Q1

REPORT INFORMATION
  Report Type: Spontaneous
  Country: RU (occurrence: RU)
  Receive Date: 20240318
  Receipt Date: 20240318
  Transmission Date: 20240410
  Serious: Yes (Death)
  Sender: FDA-Public Use
  Company Number: RU-JNJFOC-20240344978

PATIENT
  Age: 63 Year
  Sex: Female

DRUGS (9)
  1. UPTRAVI [Suspect]
     Active Substance: SELEXIPAG
     Indication: Pulmonary arterial hypertension
     Route: 048
     Dates: start: 202308
  2. UPTRAVI [Suspect]
     Active Substance: SELEXIPAG
     Indication: Connective tissue disorder
  3. SILDENAFIL [Concomitant]
     Active Substance: SILDENAFIL
  4. MACITENTAN [Concomitant]
     Active Substance: MACITENTAN
  5. IVABRADINE [Concomitant]
     Active Substance: IVABRADINE
  6. ATORVASTATIN [Concomitant]
     Active Substance: ATORVASTATIN
  7. SPIRONOLACTONE [Concomitant]
     Active Substance: SPIRONOLACTONE
  8. XARELTO [Concomitant]
     Active Substance: RIVAROXABAN
  9. TORSEMIDE [Concomitant]
     Active Substance: TORSEMIDE

REACTIONS (1)
  - Death [Fatal]
